FAERS Safety Report 20471722 (Version 1)
Quarter: 2022Q1

REPORT INFORMATION
  Report Type: Spontaneous
  Country: US (occurrence: US)
  Receive Date: 20220214
  Receipt Date: 20220214
  Transmission Date: 20220423
  Serious: Yes (Hospitalization, Other)
  Sender: FDA-Public Use
  Company Number: US-INSUD PHARMA-2202US00549

PATIENT

DRUGS (8)
  1. ESTRASORB [Suspect]
     Active Substance: ESTRADIOL HEMIHYDRATE
     Indication: In vitro fertilisation
     Dosage: PATCH 0.1 MG/24 H
     Route: 062
  2. GONAL-F [Suspect]
     Active Substance: FOLLITROPIN
     Indication: Ovulation induction
     Dosage: 150 INTERNATIONAL UNIT
     Route: 065
  3. MENOPUR [Suspect]
     Active Substance: FOLLITROPIN\LUTEINIZING HORMONE
     Indication: Ovulation induction
     Dosage: 150 INTERNATIONAL UNIT
     Route: 065
  4. CETROTIDE [Suspect]
     Active Substance: CETRORELIX ACETATE
     Indication: Ovulation induction
     Dosage: 250 MICROGRAM, INITIATED ON DAY 5
     Route: 065
  5. LUPRON [Suspect]
     Active Substance: LEUPROLIDE ACETATE
     Indication: Ovulation induction
     Dosage: TRIGGER SHOT OF 1 MILLIGRAM ADMINISTERED ON DAY 10
     Route: 065
  6. UNSPECIFIED INGREDIENT [Suspect]
     Active Substance: UNSPECIFIED INGREDIENT
     Indication: In vitro fertilisation
     Dosage: UNK
     Route: 048
  7. ESTRACE [Suspect]
     Active Substance: ESTRADIOL
     Indication: In vitro fertilisation
     Dosage: 2 MG, TID
     Route: 048
  8. ENDOMETRIN [Suspect]
     Active Substance: PROGESTERONE
     Indication: In vitro fertilisation
     Dosage: 100 MILLIGRAM, TID
     Route: 067

REACTIONS (6)
  - Optic neuritis [Recovering/Resolving]
  - Myelin oligodendrocyte glycoprotein antibody-associated disease [Recovering/Resolving]
  - Blindness [Recovering/Resolving]
  - Eye pain [Recovering/Resolving]
  - Papilloedema [Recovering/Resolving]
  - Pupillary reflex impaired [Recovering/Resolving]
